FAERS Safety Report 7459526-9 (Version None)
Quarter: 2011Q2

REPORT INFORMATION
  Report Type: 
  Country: None (occurrence: None)
  Receive Date: 20110504
  Receipt Date: 20110504
  Transmission Date: 20111010
  Serious: Yes (Other)
  Sender: FDA-Public Use
  Company Number: None

PATIENT
  Sex: Male
  Weight: 77.5651 kg

DRUGS (1)
  1. INVEGA SUSTENNA [Suspect]
     Indication: DELUSIONAL DISORDER, UNSPECIFIED TYPE
     Dosage: 234MG/1.5ML ONE DOSE IM
     Route: 030
     Dates: start: 20110323, end: 20110323

REACTIONS (8)
  - SYNCOPE [None]
  - PAIN [None]
  - HYPERHIDROSIS [None]
  - COUGH [None]
  - HEADACHE [None]
  - HYPERTHERMIA [None]
  - FIBRIN D DIMER INCREASED [None]
  - SHOCK [None]
